FAERS Safety Report 9744861 (Version 1)
Quarter: 2013Q4

REPORT INFORMATION
  Report Type: Report from Study
  Country: AR (occurrence: AR)
  Receive Date: 20131211
  Receipt Date: 20131211
  Transmission Date: 20140711
  Serious: Yes (Hospitalization)
  Sender: FDA-Public Use
  Company Number: AR-ROCHE-1317129

PATIENT
  Sex: Male

DRUGS (1)
  1. RANIBIZUMAB [Suspect]
     Indication: VISUAL ACUITY REDUCED
     Route: 050
     Dates: start: 2012

REACTIONS (3)
  - Urinary bladder haemorrhage [Recovering/Resolving]
  - Hip fracture [Recovering/Resolving]
  - Fall [Unknown]
